FAERS Safety Report 23973265 (Version 1)
Quarter: 2024Q2

REPORT INFORMATION
  Report Type: Spontaneous
  Country: FR (occurrence: FR)
  Receive Date: 20240613
  Receipt Date: 20240613
  Transmission Date: 20240715
  Serious: Yes (Other)
  Sender: FDA-Public Use
  Company Number: FR-ALNYLAM PHARMACEUTICALS, INC.-ALN-2024-003317

PATIENT

DRUGS (2)
  1. OXLUMO [Suspect]
     Active Substance: LUMASIRAN
     Indication: Product used for unknown indication
     Dosage: UNK, MONTHLY (ONE INJECTION EVERY MONTH)
     Route: 065
     Dates: start: 20220516, end: 20220516
  2. OXLUMO [Suspect]
     Active Substance: LUMASIRAN
     Dosage: UNK, Q3M (ONE INJECTION EVERY THREE MONTH)
     Route: 065

REACTIONS (2)
  - Renal transplant [Unknown]
  - Off label use [Unknown]

NARRATIVE: CASE EVENT DATE: 20230501
